FAERS Safety Report 6460735-6 (Version None)
Quarter: 2009Q4

REPORT INFORMATION
  Report Type: 
  Country: None (occurrence: None)
  Receive Date: 20091125
  Receipt Date: 20091125
  Transmission Date: 20100525
  Serious: Yes (Hospitalization)
  Sender: FDA-Public Use
  Company Number: None

PATIENT
  Sex: Male
  Weight: 83.5 kg

DRUGS (3)
  1. CYCLOPHOSPHAMIDE [Suspect]
     Dosage: 600 MG
  2. PENTOSTATIN [Suspect]
     Dosage: 2 MG
  3. RITUXIMAB (MOAB C2B8 ANTI CD20, CHIMERIC) [Suspect]
     Dosage: 740 MG

REACTIONS (4)
  - DEHYDRATION [None]
  - FEBRILE NEUTROPENIA [None]
  - NAUSEA [None]
  - VOMITING [None]
